FAERS Safety Report 13146585 (Version 4)
Quarter: 2017Q2

REPORT INFORMATION
  Report Type: Report from Study
  Country: FR (occurrence: FR)
  Receive Date: 20170125
  Receipt Date: 20170613
  Transmission Date: 20170830
  Serious: Yes (Hospitalization)
  Sender: FDA-Public Use
  Company Number: FR-ROCHE-1883063

PATIENT
  Age: 70 Year
  Sex: Female
  Weight: 58.6 kg

DRUGS (8)
  1. DOXORUBICIN [Suspect]
     Active Substance: DOXORUBICIN
     Indication: B-CELL LYMPHOMA
     Dosage: DATE OF MOST RECENT DOSE PRIOR TO THE EVENT ONSET: 03/MAY/2016 OF 81.5 MG AT 21:30?ROUTE AND DOSE PE
     Route: 042
     Dates: start: 20160115
  2. CYCLOPHOSPHAMIDE. [Suspect]
     Active Substance: CYCLOPHOSPHAMIDE
     Indication: B-CELL LYMPHOMA
     Dosage: DATE OF MOST RECENT DOSE PRIOR TO THE EVENT ONSET: 03/MAY/2016 OF 1222 MG AT 23:10?ROUTE AND DOSE PE
     Route: 042
     Dates: start: 20160115
  3. RITUXIMAB [Suspect]
     Active Substance: RITUXIMAB
     Indication: B-CELL LYMPHOMA
     Dosage: DATE OF MOST RECENT DOSE PRIOR TO THE EVENT ONSET: 15/JUN/2016 OF 611 MG AT 11:15?ROUTE AND DOSE PER
     Route: 042
     Dates: start: 20160115
  4. VINCRISTINE [Suspect]
     Active Substance: VINCRISTINE
     Indication: B-CELL LYMPHOMA
     Dosage: DATE OF MOST RECENT DOSE PRIOR TO THE EVENT ONSET: 03/MAY/2016 OF 2 MG AT 22:20?WITH A CAP OF 2.0 MG
     Route: 050
     Dates: start: 20160115
  5. BISOPROLOL [Concomitant]
     Active Substance: BISOPROLOL
     Indication: SUPRAVENTRICULAR TACHYCARDIA
     Route: 065
     Dates: start: 20160404
  6. VENETOCLAX [Suspect]
     Active Substance: VENETOCLAX
     Indication: B-CELL LYMPHOMA
     Dosage: DATE OF MOST RECENT DOSE PRIOR TO THE EVENT ONSET: 24/JUN/2016 OF 800 MG?FORM AND ROUTE PER PROTOCOL
     Route: 048
     Dates: start: 20160118
  7. LYSANXIA [Concomitant]
     Active Substance: PRAZEPAM
     Indication: ANXIETY
  8. PREDNISONE. [Suspect]
     Active Substance: PREDNISONE
     Indication: B-CELL LYMPHOMA
     Dosage: DATE OF MOST RECENT DOSE PRIOR TO THE EVENT ONSET: 07/MAY/2016 (100 MG).?ROUTE AND DOSE PER PROTOCOL
     Route: 048
     Dates: start: 20160115

REACTIONS (1)
  - Epilepsy [Recovered/Resolved]

NARRATIVE: CASE EVENT DATE: 20161228
